FAERS Safety Report 11796438 (Version 1)
Quarter: 2015Q4

REPORT INFORMATION
  Report Type: Other
  Country: GB (occurrence: GB)
  Receive Date: 20151203
  Receipt Date: 20151203
  Transmission Date: 20160305
  Serious: Yes (Other)
  Sender: FDA-Public Use
  Company Number: GB-MYLANLABS-2015M1041224

PATIENT

DRUGS (20)
  1. DERMOVATE [Concomitant]
     Active Substance: CLOBETASOL
     Dosage: 30 G, QW (0.05%)
     Dates: start: 20151002
  2. CITALOPRAM [Concomitant]
     Active Substance: CITALOPRAM HYDROBROMIDE
     Dosage: 10 MG, QD
     Dates: start: 20151015
  3. CITALOPRAM [Concomitant]
     Active Substance: CITALOPRAM HYDROBROMIDE
     Dosage: 20 MG, QD
     Dates: start: 20151002
  4. PARACETAMOL [Concomitant]
     Active Substance: ACETAMINOPHEN
     Dosage: 500 MG, UNK (TAKE 1 TO 2 TABLETS MAXIMUM OF EIGHT TABLETS DAILY)
     Dates: start: 20151002
  5. ALENDRONATE SODIUM. [Suspect]
     Active Substance: ALENDRONATE SODIUM
     Indication: BONE DISORDER
     Dosage: 1 DF, TOTAL (WEEKLY, ONLY ONE DOSE TAKEN))
     Dates: start: 20151019, end: 20151019
  6. DERMOL                             /01330701/ [Concomitant]
     Dosage: 500 ML, UNK (500 LOTION APPLY TO SKIN OR USE A SOAP SUBSTITUTE)
     Route: 061
     Dates: start: 20151002
  7. METFORMIN [Concomitant]
     Active Substance: METFORMIN HYDROCHLORIDE
     Dosage: 1 G, BID
     Dates: start: 20151002
  8. ATORVASTATIN [Concomitant]
     Active Substance: ATORVASTATIN
     Dosage: 20 MG, QD
     Dates: start: 20151002
  9. BUMETANIDE. [Concomitant]
     Active Substance: BUMETANIDE
     Dosage: 1 MG, QD (EACH MORNING)
     Dates: start: 20151002
  10. ACETYLCYSTEIN [Concomitant]
     Active Substance: ACETYLCYSTEINE
     Dosage: 10 ML, QD (5%)
     Route: 047
     Dates: start: 20151002
  11. BUPRENORPHINE. [Concomitant]
     Active Substance: BUPRENORPHINE
     Dosage: 5 ?G, QW (5 MICROGRAMS/HOUR)
     Dates: start: 20150914
  12. MONOMIL [Concomitant]
     Dosage: 60 MG, QD
     Dates: start: 20151002
  13. SALBUTAMOL [Concomitant]
     Active Substance: ALBUTEROL
     Indication: DYSPNOEA
     Dosage: 200 ?G, UNK (2 PUFFS 4 TIMES DAILY WHEN REQUIRED)
     Route: 055
     Dates: start: 20151002
  14. TIOTROPIUM BROMIDE [Concomitant]
     Active Substance: TIOTROPIUM BROMIDE
     Dosage: 18 ?G, QD (AT THE SAME TIME OF DAY)
     Route: 055
     Dates: start: 20151026
  15. LANSOPRAZOLE. [Concomitant]
     Active Substance: LANSOPRAZOLE
     Dosage: 15 MG, QD
     Dates: start: 20151002
  16. LEVOTHYROXINE SODIUM. [Concomitant]
     Active Substance: LEVOTHYROXINE SODIUM
     Dosage: 100 ?G, QD (EACH MORNING AT LEAST 30 MINUTES BEFORE BREAKFAST, CAFFEINE-CONTAINING DRINKS OR OTHER )
     Dates: start: 20151002
  17. ATENOLOL. [Concomitant]
     Active Substance: ATENOLOL
     Dosage: 25 MG, QD
     Dates: start: 20151002
  18. NICORANDIL [Concomitant]
     Active Substance: NICORANDIL
     Dosage: 20 MG, BID
     Dates: start: 20151002
  19. ASPIRIN                            /00002701/ [Concomitant]
     Active Substance: ASPIRIN
     Dosage: 75 MG, QD
     Dates: start: 20151002
  20. GLICLAZIDE [Concomitant]
     Active Substance: GLICLAZIDE
     Dosage: 80 MG, BID
     Dates: start: 20151002

REACTIONS (2)
  - Swelling face [Not Recovered/Not Resolved]
  - Local swelling [Not Recovered/Not Resolved]

NARRATIVE: CASE EVENT DATE: 20151021
